FAERS Safety Report 7734016-4 (Version None)
Quarter: 2011Q3

REPORT INFORMATION
  Report Type: 
  Country: None (occurrence: None)
  Receive Date: 20110906
  Receipt Date: 20110906
  Transmission Date: 20111222
  Serious: Yes (Hospitalization)
  Sender: FDA-Public Use
  Company Number: None

PATIENT
  Age: 79 Year
  Sex: Male
  Weight: 103 kg

DRUGS (2)
  1. ASPIRIN [Suspect]
     Indication: CORONARY ARTERIAL STENT INSERTION
     Dosage: 325 MG EVERY DAY PO
     Route: 048
     Dates: start: 20040201, end: 20100920
  2. CLOPIDOGREL [Suspect]
     Indication: CORONARY ARTERIAL STENT INSERTION
     Dosage: 75 MG EVERY DAY PO
     Route: 048
     Dates: start: 20040201, end: 20100920

REACTIONS (6)
  - DUODENAL ULCER [None]
  - DIARRHOEA [None]
  - HAEMOGLOBIN DECREASED [None]
  - BARRETT'S OESOPHAGUS [None]
  - HIATUS HERNIA [None]
  - GASTRIC HAEMORRHAGE [None]
